FAERS Safety Report 25259345 (Version 1)
Quarter: 2025Q2

REPORT INFORMATION
  Report Type: Spontaneous
  Country: IT (occurrence: IT)
  Receive Date: 20250501
  Receipt Date: 20250501
  Transmission Date: 20250717
  Serious: Yes (Hospitalization, Other)
  Sender: AUROBINDO
  Company Number: IT-MINISAL02-1035671

PATIENT
  Age: 69 Year
  Sex: Female

DRUGS (3)
  1. CARBOPLATIN [Suspect]
     Active Substance: CARBOPLATIN
     Indication: Product used for unknown indication
     Route: 042
  2. KEYTRUDA [Suspect]
     Active Substance: PEMBROLIZUMAB
     Indication: Product used for unknown indication
     Route: 042
     Dates: start: 20250220, end: 20250313
  3. ALIMTA [Suspect]
     Active Substance: PEMETREXED DISODIUM
     Indication: Product used for unknown indication
     Route: 042

REACTIONS (1)
  - Autoimmune colitis [Recovering/Resolving]

NARRATIVE: CASE EVENT DATE: 20250318
